FAERS Safety Report 5627120-8 (Version None)
Quarter: 2008Q1

REPORT INFORMATION
  Report Type: 
  Country: None (occurrence: None)
  Receive Date: 20080212
  Receipt Date: 20080212
  Transmission Date: 20080703
  Serious: Yes (Other)
  Sender: FDA-Public Use
  Company Number: None

PATIENT
  Age: 27 Year
  Sex: Male
  Weight: 92.9874 kg

DRUGS (1)
  1. CHANTIX [Suspect]
     Indication: SMOKING CESSATION THERAPY
     Dosage: .5 MG Q.D. PO
     Route: 048
     Dates: start: 20070423, end: 20070516

REACTIONS (5)
  - AGORAPHOBIA [None]
  - CLAUSTROPHOBIA [None]
  - FEAR [None]
  - PANIC DISORDER [None]
  - STRESS [None]
